FAERS Safety Report 7465345-X (Version None)
Quarter: 2011Q2

REPORT INFORMATION
  Report Type: 
  Country: None (occurrence: None)
  Receive Date: 20110509
  Receipt Date: 20110428
  Transmission Date: 20111010
  Serious: Yes (Death, Hospitalization)
  Sender: FDA-Public Use
  Company Number: US-BRISTOL-MYERS SQUIBB COMPANY-14412829

PATIENT
  Age: 61 Year
  Sex: Male
  Weight: 70 kg

DRUGS (4)
  1. TAXOTERE [Suspect]
     Indication: NON-SMALL CELL LUNG CANCER
     Dosage: THERAPY START DATE  16DEC05 6.6667 MG
     Route: 042
     Dates: start: 20051216, end: 20060331
  2. PREDNISONE [Concomitant]
     Indication: COUGH
     Dosage: DOSAGE TAPPERED.
     Route: 048
  3. TESSALON [Concomitant]
     Indication: COUGH
     Route: 065
  4. CETUXIMAB [Suspect]
     Indication: NON-SMALL CELL LUNG CANCER
     Dosage: 110.8571 MG.THERAPY START DATE:16DEC05;LOT NO:05C00076B;05C00433B;06C00030B;06C00233C
     Route: 042
     Dates: start: 20051216, end: 20060811

REACTIONS (5)
  - RADIATION FIBROSIS - LUNG [None]
  - INJURY [None]
  - HAEMOPTYSIS [None]
  - RADIATION LARYNX INJURY [None]
  - SUDDEN DEATH [None]
